FAERS Safety Report 11237579 (Version 1)
Quarter: 2015Q3

REPORT INFORMATION
  Report Type: Spontaneous
  Country: US (occurrence: US)
  Receive Date: 20150703
  Receipt Date: 20150703
  Transmission Date: 20151125
  Serious: Yes (Death, Other)
  Sender: FDA-Public Use
  Company Number: US-CIPLA LTD.-2015US05156

PATIENT

DRUGS (11)
  1. GEMCITABINE [Suspect]
     Active Substance: GEMCITABINE\GEMCITABINE HYDROCHLORIDE
     Indication: PANCREATIC CARCINOMA
     Dosage: 1000 MG/M2, WEEKLY
     Route: 048
  2. OXALIPLATIN. [Suspect]
     Active Substance: OXALIPLATIN
     Indication: PANCREATIC CARCINOMA
     Dosage: 85 MG/M2 IN WATER WITH 5% DEXTROSE OVER 2 HOURS
     Route: 042
  3. LEUCOVORIN. [Suspect]
     Active Substance: LEUCOVORIN
     Indication: PANCREATIC CARCINOMA
     Dosage: 40 MG/M2, UNK
     Route: 042
  4. SEROTONIN 5 HT3 RECEPTOR ANTAGONISTS UNSPECIFIED [Concomitant]
     Dosage: GIVEN FOR 3 DAYS AFTER CHEMOTHERAPY
     Route: 048
  5. DEXAMETHASONE. [Concomitant]
     Active Substance: DEXAMETHASONE
     Dosage: GIVEN FOR 3 DAYS AFTER CHEMOTHERAPY
     Route: 048
  6. FLUOROURACIL. [Suspect]
     Active Substance: FLUOROURACIL
     Indication: PANCREATIC CARCINOMA
     Dosage: 2400 MG/M2 IN WATER WITH 5% DEXTROSE CONTINUOUS IV INFUSION OVER 46 H
     Route: 042
  7. PEGFILGRASTIM [Suspect]
     Active Substance: PEGFILGRASTIM
     Indication: PREMEDICATION
     Dosage: 6MG WAS GIVEN ROUTINELY 3 DAYS AFTER CHEMOTHERAPY
     Route: 065
  8. IRINOTECAN [Suspect]
     Active Substance: IRINOTECAN
     Indication: PANCREATIC CARCINOMA
     Dosage: 180 MG/M2 BOTH IN NS IV OVER 90 MIN
     Route: 042
  9. CAPEGARD [Suspect]
     Active Substance: CAPECITABINE
     Indication: PANCREATIC CARCINOMA
     Dosage: 825 MG/M2, TWICE DAILY, MONDAY THROUGH FRIDAY
     Route: 048
  10. DEXAMETHASONE. [Concomitant]
     Active Substance: DEXAMETHASONE
     Indication: PREMEDICATION
     Dosage: GIVEN FOR 3 DAYS PRIOR TO CHEMOTHERAPY
     Route: 042
  11. SEROTONIN 5 HT3 RECEPTOR ANTAGONISTS UNSPECIFIED [Concomitant]
     Indication: PREMEDICATION
     Dosage: GIVEN FOR 3 DAYS PRIOR TO CHEMOTHERAPY
     Route: 042

REACTIONS (3)
  - Acute respiratory distress syndrome [Unknown]
  - Death [Fatal]
  - Sepsis [Unknown]
